FAERS Safety Report 23148331 (Version 6)
Quarter: 2023Q4

REPORT INFORMATION
  Report Type: Spontaneous
  Country: US (occurrence: US)
  Receive Date: 20231106
  Receipt Date: 20231227
  Transmission Date: 20240109
  Serious: Yes (Other)
  Sender: FDA-Public Use
  Company Number: US-BRISTOL-MYERS SQUIBB COMPANY-2023-151741

PATIENT
  Age: 79 Year
  Sex: Female

DRUGS (1)
  1. LENALIDOMIDE [Suspect]
     Active Substance: LENALIDOMIDE
     Indication: Nephrogenic anaemia
     Dosage: FREQUENCY: 14DAYS ON FOLLOWED BY 14 DAY BREAK-INSTEAD OF A 7 DAY BREAK?TAKE 1 CAPSULE WHOLE BY MOUTH
     Route: 048
     Dates: start: 20221103

REACTIONS (7)
  - Off label use [Unknown]
  - Insomnia [Recovering/Resolving]
  - Poor quality sleep [Recovering/Resolving]
  - Asthenia [Recovering/Resolving]
  - Neuropathy peripheral [Recovering/Resolving]
  - Somnolence [Recovering/Resolving]
  - Fatigue [Recovering/Resolving]
